FAERS Safety Report 16712833 (Version 1)
Quarter: 2019Q3

REPORT INFORMATION
  Report Type: Spontaneous
  Country: US (occurrence: US)
  Receive Date: 20190817
  Receipt Date: 20190817
  Transmission Date: 20191004
  Serious: No
  Sender: FDA-Public Use
  Company Number: US-009507513-1908USA004320

PATIENT
  Age: 89 Year
  Sex: Male

DRUGS (4)
  1. VITAMINS (UNSPECIFIED) [Concomitant]
     Active Substance: VITAMINS
  2. ALBUTEROL. [Concomitant]
     Active Substance: ALBUTEROL
  3. CHOLESTEROL [Concomitant]
     Active Substance: CHOLESTEROL
  4. ASMANEX [Suspect]
     Active Substance: MOMETASONE FUROATE
     Indication: ASTHMA
     Dosage: 220 MCG PER ONE PUFF TWICE A DAY
     Route: 055
     Dates: start: 201906

REACTIONS (1)
  - Faeces discoloured [Not Recovered/Not Resolved]

NARRATIVE: CASE EVENT DATE: 20190726
